FAERS Safety Report 13468523 (Version 1)
Quarter: 2017Q2

REPORT INFORMATION
  Report Type: Spontaneous
  Country: FR (occurrence: FR)
  Receive Date: 20170421
  Receipt Date: 20170421
  Transmission Date: 20170830
  Serious: Yes (Death)
  Sender: FDA-Public Use
  Company Number: FR-PFIZER INC-2017172857

PATIENT
  Age: 86 Year
  Sex: Male

DRUGS (9)
  1. CORDARONE [Suspect]
     Active Substance: AMIODARONE HYDROCHLORIDE
     Dosage: 5 DF, SINGLE
     Route: 065
     Dates: start: 20170329, end: 20170329
  2. BISOPROLOL HEMIFUMARATE [Suspect]
     Active Substance: BISOPROLOL FUMARATE
     Dosage: 5 MG, 2X/DAY
     Route: 048
     Dates: start: 20170327, end: 20170330
  3. FUROSEMIDE. [Concomitant]
     Active Substance: FUROSEMIDE
     Dosage: UNK
  4. CORDARONE [Suspect]
     Active Substance: AMIODARONE HYDROCHLORIDE
     Dosage: 2 DF, SINGLE
     Route: 065
     Dates: start: 20170330, end: 20170330
  5. ELIQUIS [Concomitant]
     Active Substance: APIXABAN
     Dosage: UNK
  6. RAMIPRIL. [Concomitant]
     Active Substance: RAMIPRIL
     Dosage: UNK
  7. DIFFU K [Concomitant]
     Active Substance: POTASSIUM CHLORIDE
     Dosage: UNK UNK, 1X/DAY
     Dates: start: 20170327
  8. BISOPROLOL HEMIFUMARATE [Suspect]
     Active Substance: BISOPROLOL FUMARATE
     Indication: ATRIAL FIBRILLATION
     Dosage: 3.75 MG, 2X/DAY
     Route: 048
  9. LEXOMIL [Suspect]
     Active Substance: BROMAZEPAM
     Dosage: 0.25 DF, DAILY
     Route: 048
     Dates: start: 20170327, end: 20170330

REACTIONS (3)
  - Fall [Fatal]
  - Head injury [Fatal]
  - Subdural haematoma [Fatal]

NARRATIVE: CASE EVENT DATE: 20170330
